FAERS Safety Report 7250766-0 (Version None)
Quarter: 2011Q1

REPORT INFORMATION
  Report Type: 
  Country: None (occurrence: None)
  Receive Date: 20110128
  Receipt Date: 20110120
  Transmission Date: 20110831
  Serious: Yes (Other)
  Sender: FDA-Public Use
  Company Number: US-PERRIGO-11US000513

PATIENT
  Sex: Male
  Weight: 58.957 kg

DRUGS (2)
  1. NITETIME FREE CHRY 6HR LIQ 041 [Suspect]
     Dosage: 18 BOTTLES IN 13 DAYS
     Route: 048
     Dates: start: 20110101
  2. NITETIME FREE CHRY 6HR LIQ 041 [Suspect]
     Indication: ALCOHOL ABUSE
     Dosage: 1/2 BOTTLE EVERY 5-6 HOURS
     Route: 048
     Dates: start: 20110107

REACTIONS (4)
  - INTENTIONAL OVERDOSE [None]
  - BACK PAIN [None]
  - OFF LABEL USE [None]
  - INTENTIONAL DRUG MISUSE [None]
